FAERS Safety Report 4530986-6 (Version None)
Quarter: 2004Q4

REPORT INFORMATION
  Report Type: 
  Country: None (occurrence: None)
  Receive Date: 20041217
  Receipt Date: 20041215
  Transmission Date: 20050328
  Serious: Yes (Life-Threatening, Other)
  Sender: FDA-Public Use
  Company Number: US-MERCK-0412USA01839

PATIENT
  Age: 43 Year
  Sex: Female

DRUGS (1)
  1. VIOXX [Suspect]
     Route: 048

REACTIONS (10)
  - ADVERSE EVENT [None]
  - ANAEMIA [None]
  - BACK DISORDER [None]
  - BLOOD DISORDER [None]
  - CHOLELITHIASIS [None]
  - COAGULOPATHY [None]
  - HEPATITIS C [None]
  - HYPERTENSION [None]
  - IDIOPATHIC THROMBOCYTOPENIC PURPURA [None]
  - LIVER DISORDER [None]
